FAERS Safety Report 8242569-5 (Version None)
Quarter: 2012Q1

REPORT INFORMATION
  Report Type: 
  Country: None (occurrence: None)
  Receive Date: 20120329
  Receipt Date: 20120323
  Transmission Date: 20120608
  Serious: Yes (Other)
  Sender: FDA-Public Use
  Company Number: PHHY2012TN026055

PATIENT
  Age: 26 Year
  Sex: Female

DRUGS (4)
  1. ZOLEDRONOC ACID [Suspect]
     Indication: FIBROUS DYSPLASIA OF BONE
     Dosage: 4 MG, EVERY SIX MONTHS
     Route: 042
  2. ZOLEDRONOC ACID [Suspect]
     Dosage: 4 MG, EVERY SIX MONTHS
     Route: 042
  3. CALCIUM CARBONATE [Concomitant]
     Indication: SUPPLEMENTATION THERAPY
  4. VITAMIN D [Concomitant]
     Indication: SUPPLEMENTATION THERAPY

REACTIONS (2)
  - HEADACHE [None]
  - HUMERUS FRACTURE [None]
